FAERS Safety Report 5717904-X (Version None)
Quarter: 2008Q2

REPORT INFORMATION
  Report Type: 
  Country: None (occurrence: None)
  Receive Date: 20080425
  Receipt Date: 20080416
  Transmission Date: 20081010
  Serious: Yes (Death)
  Sender: FDA-Public Use
  Company Number: GB-ABBOTT-98P-167-0078100-00

PATIENT
  Age: 27 Year
  Sex: Male

DRUGS (8)
  1. VALPROATE SODIUM [Suspect]
     Indication: EPILEPSY
     Route: 048
     Dates: start: 19931201, end: 19940301
  2. VALPROATE SODIUM [Suspect]
     Dosage: 600 MG DAILY
     Route: 048
     Dates: start: 19940301, end: 19940501
  3. VALPROATE SODIUM [Suspect]
     Dosage: DOSE INCREASED
     Route: 048
     Dates: start: 19940501
  4. VALPROATE SODIUM [Suspect]
  5. MEFLOQUINE [Interacting]
     Indication: MALARIA PROPHYLAXIS
     Dosage: 250 MG WEEKLY
     Route: 048
     Dates: start: 19940527
  6. CARBAMAZEPINE [Concomitant]
     Indication: EPILEPSY
     Route: 048
  7. CARBAMAZEPINE [Concomitant]
     Dosage: DOSE TAPERED
     Route: 048
     Dates: start: 19940301, end: 19940501
  8. CARBAMAZEPINE [Concomitant]
     Dosage: DOSE TAPERED
     Route: 048
     Dates: start: 19940501

REACTIONS (10)
  - ABNORMAL BEHAVIOUR [None]
  - DEPRESSION [None]
  - DROWNING [None]
  - DRUG INTERACTION [None]
  - DRUG LEVEL BELOW THERAPEUTIC [None]
  - EPILEPSY [None]
  - FATIGUE [None]
  - FOOT FRACTURE [None]
  - PSYCHOTIC DISORDER [None]
  - SOCIAL AVOIDANT BEHAVIOUR [None]
